FAERS Safety Report 5447735-X (Version None)
Quarter: 2007Q3

REPORT INFORMATION
  Report Type: 
  Country: None (occurrence: None)
  Receive Date: 20070910
  Receipt Date: 20070830
  Transmission Date: 20080115
  Serious: Yes (Death)
  Sender: FDA-Public Use
  Company Number: ES-ELI_LILLY_AND_COMPANY-ES200709000048

PATIENT
  Age: 86 Year
  Sex: Female

DRUGS (3)
  1. FORTEO [Suspect]
     Indication: OSTEOPOROSIS
     Dosage: 20 UG, UNKNOWN
     Route: 058
     Dates: start: 20060901
  2. SINTROM [Concomitant]
     Dosage: UNK, UNKNOWN
     Route: 065
  3. DIGOXIN [Concomitant]
     Dosage: UNK, UNKNOWN
     Route: 065

REACTIONS (1)
  - CEREBRAL HAEMORRHAGE [None]
